FAERS Safety Report 7268406-3 (Version None)
Quarter: 2011Q1

REPORT INFORMATION
  Report Type: 
  Country: None (occurrence: None)
  Receive Date: 20110201
  Receipt Date: 20110128
  Transmission Date: 20110831
  Serious: Yes (Hospitalization, Other)
  Sender: FDA-Public Use
  Company Number: US-AMGEN-USASP2010011042

PATIENT
  Age: 92 Year
  Sex: Female
  Weight: 62.132 kg

DRUGS (23)
  1. FERROUS SULFATE TAB [Concomitant]
     Dosage: 325 MG, BID
     Route: 048
     Dates: start: 20100203
  2. NITROLINGUAL [Concomitant]
     Dosage: 0.4 MG, PRN
     Dates: start: 20100101
  3. LANTUS [Concomitant]
     Dosage: 13 UNIT, PRN
  4. DELTASONE                          /00044701/ [Concomitant]
     Dosage: 5 MG, QOD
     Route: 048
     Dates: start: 20100201
  5. LATANOPROST [Concomitant]
     Dosage: 0.005 %, QD
  6. VICODIN [Concomitant]
     Dosage: UNK
     Route: 048
     Dates: start: 20101213
  7. KADIAN [Concomitant]
     Dosage: 10 MG, PRN
     Route: 048
     Dates: start: 20100101
  8. NPLATE [Suspect]
     Indication: IDIOPATHIC THROMBOCYTOPENIC PURPURA
     Dosage: 500 A?G, Q2WK
     Dates: start: 20100721
  9. CORTICOSTEROIDS [Concomitant]
     Indication: IDIOPATHIC THROMBOCYTOPENIC PURPURA
     Dosage: UNK
     Dates: start: 20100310, end: 20100331
  10. LANOXIN [Concomitant]
     Dosage: 0.125 MG, QD
     Route: 048
     Dates: start: 20100101
  11. TOPROL-XL [Concomitant]
     Dosage: 50 MG, BID
     Route: 048
  12. PRILOSEC [Concomitant]
     Dosage: 20 MG, QD
     Route: 048
     Dates: start: 20100701
  13. ACETAMINOPHEN [Concomitant]
     Dosage: 650 MG, QD
  14. LOPRESSOR [Concomitant]
     Dosage: 50 MG, BID
     Route: 048
     Dates: start: 20100101
  15. DORZOLAMIDE HCL AND TIMOLOL MALEATE [Concomitant]
     Dosage: 1 GTT, BID
     Dates: start: 20100101
  16. LASIX [Concomitant]
     Dosage: 40 MG, UNK
     Route: 048
     Dates: start: 20100101
  17. CRESTOR [Concomitant]
     Dosage: 20 MG, QD
     Route: 048
     Dates: start: 20100101
  18. SENNATAB [Concomitant]
     Dosage: UNK
     Route: 048
     Dates: start: 20100101
  19. TIAZAC                             /00489702/ [Concomitant]
     Dosage: 120 MG, BID
     Route: 048
  20. GLUCOTROL [Concomitant]
     Dosage: 2.5 MG, QD
     Route: 048
     Dates: start: 20100701
  21. ULTRAM [Concomitant]
     Dosage: 50 MG, Q6H
     Dates: start: 20100101
  22. ASPIRIN [Concomitant]
     Dosage: 325 MG, QD
  23. TRAVATAN [Concomitant]
     Dosage: 1 GTT, QHS
     Dates: start: 20100101

REACTIONS (7)
  - LEUKOCYTOSIS [None]
  - URINARY TRACT INFECTION [None]
  - ARTHRALGIA [None]
  - PLATELET COUNT DECREASED [None]
  - GROIN PAIN [None]
  - HYPOTENSION [None]
  - CEREBRAL INFARCTION [None]
